FAERS Safety Report 7419608-4 (Version None)
Quarter: 2011Q1

REPORT INFORMATION
  Report Type: 
  Country: None (occurrence: None)
  Receive Date: 20110302
  Receipt Date: 20101108
  Transmission Date: 20110831
  Serious: No
  Sender: FDA-Public Use
  Company Number: 019837

PATIENT
  Sex: Female

DRUGS (1)
  1. CIMZIA [Suspect]
     Indication: CROHN'S DISEASE
     Dosage: (SUBCUTANEOUS)
     Route: 058
     Dates: start: 20091001

REACTIONS (10)
  - IRRITABLE BOWEL SYNDROME [None]
  - ABDOMINAL PAIN UPPER [None]
  - GASTROINTESTINAL INFLAMMATION [None]
  - PRODUCTIVE COUGH [None]
  - CONSTIPATION [None]
  - VIRAL INFECTION [None]
  - RESPIRATORY TRACT CONGESTION [None]
  - FLATULENCE [None]
  - NASOPHARYNGITIS [None]
  - WEIGHT DECREASED [None]
